FAERS Safety Report 10086442 (Version 2)
Quarter: 2014Q2

REPORT INFORMATION
  Report Type: Spontaneous
  Country: CH (occurrence: CH)
  Receive Date: 20140418
  Receipt Date: 20140613
  Transmission Date: 20141212
  Serious: Yes (Hospitalization, Other)
  Sender: FDA-Public Use
  Company Number: CH-PFIZER INC-2014106008

PATIENT
  Age: 61 Year
  Sex: Male
  Weight: 56 kg

DRUGS (3)
  1. SOLU-MEDROL [Suspect]
     Indication: STEVENS-JOHNSON SYNDROME
     Dosage: 250 MG, 1X/DAY
     Route: 041
     Dates: start: 20140310, end: 20140312
  2. STIVARGA [Suspect]
     Indication: COLORECTAL CANCER METASTATIC
     Dosage: 40 MG, 4X/DAY
     Route: 048
     Dates: start: 20140225, end: 20140305
  3. AMOXYCILLIN/CLAVULANIC ACID [Suspect]
     Indication: PNEUMONIA
     Dosage: 625 MG, 3X/DAY
     Route: 048
     Dates: start: 20140228, end: 20140305

REACTIONS (4)
  - Stevens-Johnson syndrome [Recovering/Resolving]
  - Hyponatraemia [Recovering/Resolving]
  - Oral candidiasis [Recovering/Resolving]
  - Inappropriate antidiuretic hormone secretion [Recovering/Resolving]
